FAERS Safety Report 5128294-8 (Version None)
Quarter: 2006Q4

REPORT INFORMATION
  Report Type: 
  Country: None (occurrence: None)
  Receive Date: 20061017
  Receipt Date: 20061006
  Transmission Date: 20070319
  Serious: Yes (Death, Life-Threatening)
  Sender: FDA-Public Use
  Company Number: JP-BRISTOL-MYERS SQUIBB COMPANY-13536271

PATIENT
  Age: 63 Year
  Sex: Female

DRUGS (9)
  1. PARAPLATIN [Suspect]
     Indication: ADULT T-CELL LYMPHOMA/LEUKAEMIA
     Route: 041
     Dates: start: 20030701
  2. VEPESID [Suspect]
     Indication: ADULT T-CELL LYMPHOMA/LEUKAEMIA
     Route: 042
     Dates: start: 20031201
  3. VEPESID [Suspect]
     Dates: start: 20031201
  4. ONCOVIN [Concomitant]
     Dates: start: 20030701
  5. ADRIAMYCIN PFS [Concomitant]
     Dates: start: 20030701
  6. PREDNISOLONE [Concomitant]
     Dates: start: 20030701
  7. FILDESIN [Concomitant]
     Dates: start: 20030701
  8. ENDOXAN [Concomitant]
     Dates: start: 20030701
  9. CYMERIN [Concomitant]
     Dates: start: 20030701

REACTIONS (3)
  - ACUTE MYELOID LEUKAEMIA [None]
  - ATYPICAL MYCOBACTERIAL INFECTION [None]
  - MALIGNANT NEOPLASM PROGRESSION [None]
